FAERS Safety Report 9772797 (Version 1)
Quarter: 2013Q4

REPORT INFORMATION
  Report Type: Spontaneous
  Country: US (occurrence: None)
  Receive Date: 20131218
  Receipt Date: 20131218
  Transmission Date: 20140711
  Serious: Yes (Hospitalization)
  Sender: FDA-Public Use
  Company Number: None

PATIENT
  Age: 53 Year
  Sex: Male
  Weight: 177 kg

DRUGS (9)
  1. RIVAROXABAN [Suspect]
     Indication: ATRIAL FIBRILLATION
     Route: 048
     Dates: end: 20131211
  2. CARVEDILOL [Concomitant]
  3. DIGOXIN [Concomitant]
  4. DILTIAZEM [Concomitant]
  5. FUROSEMIDE [Concomitant]
  6. IPRATROPIUM [Concomitant]
  7. LEVALBUTEROL [Concomitant]
  8. LOSARTAN [Concomitant]
  9. MONTELUKAST [Concomitant]

REACTIONS (3)
  - Nausea [None]
  - Vomiting [None]
  - Haemorrhage intracranial [None]
